FAERS Safety Report 9979652 (Version 1)
Quarter: 2014Q1

REPORT INFORMATION
  Report Type: Report from Study
  Country: US (occurrence: US)
  Receive Date: 20140306
  Receipt Date: 20140306
  Transmission Date: 20141002
  Serious: No
  Sender: FDA-Public Use
  Company Number: US-ABBVIE-13P-163-1170374-00

PATIENT
  Sex: Female
  Weight: 108.96 kg

DRUGS (7)
  1. HUMIRA [Suspect]
     Indication: RHEUMATOID ARTHRITIS
     Route: 058
  2. DIOVAN [Concomitant]
     Indication: HYPERTENSION
  3. ALLEGRA [Concomitant]
     Indication: HYPERSENSITIVITY
  4. RANITIDINE [Concomitant]
     Indication: HYPERSENSITIVITY
  5. BENADRYL [Concomitant]
     Indication: HYPERSENSITIVITY
  6. PRILOSEC [Concomitant]
     Indication: GASTROOESOPHAGEAL REFLUX DISEASE
  7. ASPIRIN [Concomitant]
     Indication: PRODUCT USED FOR UNKNOWN INDICATION

REACTIONS (8)
  - Device malfunction [Not Recovered/Not Resolved]
  - Device malfunction [Not Recovered/Not Resolved]
  - Drug dose omission [Not Recovered/Not Resolved]
  - Drug dose omission [Not Recovered/Not Resolved]
  - Injection site pain [Not Recovered/Not Resolved]
  - Injection site erythema [Not Recovered/Not Resolved]
  - Injection site swelling [Not Recovered/Not Resolved]
  - Rheumatoid arthritis [Not Recovered/Not Resolved]
